FAERS Safety Report 5385687-1 (Version None)
Quarter: 2007Q3

REPORT INFORMATION
  Report Type: 
  Country: None (occurrence: None)
  Receive Date: 20070712
  Receipt Date: 20070704
  Transmission Date: 20080115
  Serious: Yes (Life-Threatening)
  Sender: FDA-Public Use
  Company Number: GB-PFIZER INC-2007055153

PATIENT
  Age: 62 Year
  Sex: Male

DRUGS (4)
  1. ALPRAZOLAM [Suspect]
     Indication: PANIC ATTACK
  2. LORAZEPAM [Suspect]
     Indication: DEPRESSION
  3. FLUOXETINE [Concomitant]
  4. TEMAZEPAM [Concomitant]

REACTIONS (10)
  - AGITATION [None]
  - DELUSIONAL DISORDER, SOMATIC TYPE [None]
  - DRUG DEPENDENCE [None]
  - DRUG WITHDRAWAL SYNDROME [None]
  - EUPHORIC MOOD [None]
  - FEAR [None]
  - INTENTIONAL SELF-INJURY [None]
  - SLEEP DISORDER [None]
  - SUICIDE ATTEMPT [None]
  - TREATMENT NONCOMPLIANCE [None]
